FAERS Safety Report 7530021-1 (Version None)
Quarter: 2011Q2

REPORT INFORMATION
  Report Type: 
  Country: None (occurrence: None)
  Receive Date: 20110607
  Receipt Date: 20110524
  Transmission Date: 20111010
  Serious: Yes (Hospitalization, Other)
  Sender: FDA-Public Use
  Company Number: PHEH2008US05677

PATIENT
  Sex: Female

DRUGS (12)
  1. AREDIA [Suspect]
     Indication: BONE LOSS
     Dosage: UNK
     Dates: start: 19970101, end: 20051001
  2. ZOLOFT [Concomitant]
  3. FEMARA [Concomitant]
     Dosage: 2.5 MG, QD
  4. ZOFRAN [Concomitant]
  5. LISINOPRIL [Concomitant]
  6. METOPROLOL SUCCINATE [Concomitant]
  7. ACETAMINOPHEN [Concomitant]
  8. CARAFATE [Concomitant]
  9. CRESTOR [Concomitant]
  10. CODEINE SULFATE [Concomitant]
  11. LUNESTA [Concomitant]
  12. LORTAB [Concomitant]

REACTIONS (39)
  - INJURY [None]
  - RIB FRACTURE [None]
  - DECREASED APPETITE [None]
  - NAUSEA [None]
  - BONE DISORDER [None]
  - POLLAKIURIA [None]
  - VOMITING [None]
  - OSTEONECROSIS OF JAW [None]
  - PHYSICAL DISABILITY [None]
  - OESOPHAGEAL PAIN [None]
  - RENAL DISORDER [None]
  - HOT FLUSH [None]
  - COUGH [None]
  - HYPERAESTHESIA [None]
  - ARTHRITIS [None]
  - PAIN [None]
  - BACK PAIN [None]
  - METASTASES TO ABDOMINAL CAVITY [None]
  - DYSPNOEA [None]
  - VULVOVAGINAL DRYNESS [None]
  - NEURALGIA [None]
  - BREAST INFECTION [None]
  - SCOLIOSIS [None]
  - METASTASES TO BONE [None]
  - OROPHARYNGEAL PAIN [None]
  - SPONDYLOLISTHESIS [None]
  - FOOT FRACTURE [None]
  - OESOPHAGITIS [None]
  - FATIGUE [None]
  - ANXIETY [None]
  - INTERVERTEBRAL DISC DEGENERATION [None]
  - RETCHING [None]
  - OSTEOPENIA [None]
  - METASTASES TO SPINE [None]
  - FEMUR FRACTURE [None]
  - OSTEOARTHRITIS [None]
  - DYSPHAGIA [None]
  - DEPRESSION [None]
  - DIARRHOEA [None]
